FAERS Safety Report 6636547-7 (Version None)
Quarter: 2010Q1

REPORT INFORMATION
  Report Type: 
  Country: None (occurrence: None)
  Receive Date: 20100316
  Receipt Date: 20100304
  Transmission Date: 20100710
  Serious: Yes (Other)
  Sender: FDA-Public Use
  Company Number: CH-WYE-H13961710

PATIENT
  Age: 55 Year
  Sex: Male
  Weight: 68.5 kg

DRUGS (2)
  1. PANTOZOL [Suspect]
     Indication: GASTRIC ULCER
     Route: 042
     Dates: start: 20091103, end: 20100208
  2. POTASSIUM CHLORIDE [Suspect]
     Dosage: 10 ML OF 14.9%
     Route: 042
     Dates: start: 20091225, end: 20091225

REACTIONS (4)
  - BLOOD PRESSURE INCREASED [None]
  - FEELING HOT [None]
  - LOSS OF CONSCIOUSNESS [None]
  - WRONG TECHNIQUE IN DRUG USAGE PROCESS [None]
